FAERS Safety Report 6460083-4 (Version None)
Quarter: 2009Q4

REPORT INFORMATION
  Report Type: 
  Country: None (occurrence: None)
  Receive Date: 20091129
  Receipt Date: 20091123
  Transmission Date: 20100525
  Serious: Yes (Death)
  Sender: FDA-Public Use
  Company Number: PHHY2009CR51057

PATIENT
  Age: 71 Year
  Sex: Male

DRUGS (1)
  1. EXELON [Suspect]
     Indication: DEMENTIA ALZHEIMER'S TYPE
     Dosage: ONE 5 PATCH (4.6 MG PATCHES) TOPIC PER DAY
     Dates: start: 20091001

REACTIONS (1)
  - CARDIO-RESPIRATORY ARREST [None]
